FAERS Safety Report 7166461-2 (Version None)
Quarter: 2010Q4

REPORT INFORMATION
  Report Type: 
  Country: None (occurrence: None)
  Receive Date: 20101216
  Receipt Date: 20101213
  Transmission Date: 20110411
  Serious: Yes (Other)
  Sender: FDA-Public Use
  Company Number: DE-BRISTOL-MYERS SQUIBB COMPANY-15273196

PATIENT
  Age: 41 Year
  Sex: Female
  Weight: 88 kg

DRUGS (4)
  1. ABILIFY [Suspect]
     Indication: SCHIZOPHRENIA
     Dosage: 25 MG (2.5X10MG TAB)
     Route: 048
     Dates: start: 20070901
  2. CITALOPRAM HYDROBROMIDE [Suspect]
     Indication: SUICIDAL IDEATION
     Route: 048
     Dates: start: 20051101
  3. CITALOPRAM HYDROBROMIDE [Suspect]
     Indication: DEPRESSED MOOD
     Route: 048
     Dates: start: 20051101
  4. DIPIPERON [Suspect]
     Dosage: 1 TAB,QD
     Route: 048

REACTIONS (3)
  - MACULAR OEDEMA [None]
  - UVEITIS [None]
  - VISION BLURRED [None]
